FAERS Safety Report 7091159-9 (Version None)
Quarter: 2010Q4

REPORT INFORMATION
  Report Type: 
  Country: None (occurrence: None)
  Receive Date: 20101109
  Receipt Date: 20101029
  Transmission Date: 20110411
  Serious: Yes (Hospitalization)
  Sender: FDA-Public Use
  Company Number: JP-ROCHE-732018

PATIENT
  Sex: Female
  Weight: 40 kg

DRUGS (26)
  1. ACTEMRA [Suspect]
     Indication: RHEUMATOID ARTHRITIS
     Route: 041
     Dates: start: 20080625, end: 20080625
  2. ACTEMRA [Suspect]
     Route: 041
     Dates: start: 20080724, end: 20080724
  3. ACTEMRA [Suspect]
     Route: 041
     Dates: start: 20080821, end: 20080821
  4. ACTEMRA [Suspect]
     Route: 041
     Dates: start: 20080918, end: 20080918
  5. ACTEMRA [Suspect]
     Route: 041
     Dates: start: 20081016, end: 20081016
  6. ACTEMRA [Suspect]
     Route: 041
     Dates: start: 20081113, end: 20081113
  7. ACTEMRA [Suspect]
     Route: 041
     Dates: start: 20081211, end: 20081211
  8. ACTEMRA [Suspect]
     Route: 041
     Dates: start: 20090108, end: 20090108
  9. ACTEMRA [Suspect]
     Route: 041
     Dates: start: 20090205, end: 20090205
  10. ACTEMRA [Suspect]
     Route: 041
     Dates: start: 20090305, end: 20090305
  11. ACTEMRA [Suspect]
     Route: 041
     Dates: start: 20090402, end: 20090402
  12. ACTEMRA [Suspect]
     Route: 041
     Dates: start: 20090513, end: 20090513
  13. ACTEMRA [Suspect]
     Route: 041
     Dates: start: 20090101, end: 20100826
  14. PREDNISOLONE [Concomitant]
     Dosage: DOSE FORM: PERORAL AGENT
     Route: 048
  15. TAKEPRON [Concomitant]
     Route: 048
  16. AMLODIPINE [Concomitant]
     Route: 048
  17. MUCOSTA [Concomitant]
     Dosage: DOSE FORM: PERORAL AGENT
     Route: 048
  18. GASMOTIN [Concomitant]
     Dosage: DOSE FORM: PERORAL AGENT
     Route: 048
  19. PURSENNID [Concomitant]
     Route: 048
  20. RENAGEL [Concomitant]
     Route: 048
  21. ALOSENN [Concomitant]
     Dosage: DOSE FORM: GRANULATED POWDER
     Route: 048
  22. D-SORBITOL [Concomitant]
     Dosage: DOSE FORM: PERORAL LIQUID PREPARATION DRUG: D-SORBITOL(D-SORBITOL) NOTE: PROPER QUANTITY
     Route: 048
  23. NAUZELIN [Concomitant]
     Dosage: DOSE FORM: PERORAL AGENT
     Route: 048
  24. MYONAL [Concomitant]
     Dosage: DOSE FORM: PERORAL AGENT
     Route: 048
  25. MINOCYCLINE HCL [Concomitant]
     Dosage: DOSE FORM: PERORAL AGENT
     Route: 048
  26. MYSLEE [Concomitant]
     Route: 048

REACTIONS (1)
  - ARTHRALGIA [None]
